FAERS Safety Report 9060485 (Version 2)
Quarter: 2013Q1

REPORT INFORMATION
  Report Type: Spontaneous
  Country: CA (occurrence: CA)
  Receive Date: 20130212
  Receipt Date: 20130315
  Transmission Date: 20140127
  Serious: Yes (Other)
  Sender: FDA-Public Use
  Company Number: CA-PFIZER INC-2013056619

PATIENT
  Age: 49 Year
  Sex: Male
  Weight: 78.01 kg

DRUGS (1)
  1. TOVIAZ [Suspect]
     Dosage: 4 MG, 1-2 TABLETS DAILY
     Route: 048
     Dates: start: 20121130

REACTIONS (2)
  - Urinary retention [Not Recovered/Not Resolved]
  - Haematuria [Unknown]
